FAERS Safety Report 12579774 (Version 1)
Quarter: 2016Q3

REPORT INFORMATION
  Report Type: Spontaneous
  Country: DE (occurrence: DE)
  Receive Date: 20160721
  Receipt Date: 20160721
  Transmission Date: 20161109
  Serious: Yes (Other)
  Sender: FDA-Public Use
  Company Number: DE-NOVOPROD-500802

PATIENT
  Sex: Female

DRUGS (1)
  1. VICTOZA [Suspect]
     Active Substance: LIRAGLUTIDE
     Indication: TYPE 1 DIABETES MELLITUS
     Dosage: UNK
     Route: 065

REACTIONS (5)
  - Menstrual disorder [Recovering/Resolving]
  - Off label use [Unknown]
  - Seizure [Recovering/Resolving]
  - Smear site unspecified abnormal [Recovering/Resolving]
  - Hypoglycaemic unconsciousness [Recovering/Resolving]
